FAERS Safety Report 9998701 (Version 1)
Quarter: 2014Q1

REPORT INFORMATION
  Report Type: Spontaneous
  Country: US (occurrence: US)
  Receive Date: 20140312
  Receipt Date: 20140312
  Transmission Date: 20141002
  Serious: No
  Sender: FDA-Public Use
  Company Number: US-BIOGENIDEC-2014BI019362

PATIENT
  Age: 58 Year
  Sex: Female

DRUGS (7)
  1. TECFIDERA [Suspect]
     Indication: MULTIPLE SCLEROSIS
     Route: 048
     Dates: start: 20140215
  2. XANAX [Concomitant]
  3. AMBIEN [Concomitant]
  4. IMITREX [Concomitant]
  5. LEVOTHYROXINE [Concomitant]
  6. MOTRIN [Concomitant]
  7. TYLENOL [Concomitant]

REACTIONS (3)
  - Migraine [Unknown]
  - Rhinorrhoea [Unknown]
  - Flushing [Unknown]
